FAERS Safety Report 6738916-3 (Version None)
Quarter: 2010Q2

REPORT INFORMATION
  Report Type: 
  Country: None (occurrence: None)
  Receive Date: 20100524
  Receipt Date: 20100519
  Transmission Date: 20101027
  Serious: Yes (Death)
  Sender: FDA-Public Use
  Company Number: GB-MERCK-1005GBR00025

PATIENT
  Age: 44 Year
  Sex: Female
  Weight: 70 kg

DRUGS (25)
  1. EMEND [Suspect]
     Indication: NAUSEA
     Route: 048
     Dates: start: 20100311, end: 20100313
  2. ACETAMINOPHEN [Concomitant]
     Indication: PAIN
     Route: 048
  3. CHLORPHENIRAMINE MALEATE [Concomitant]
     Route: 048
  4. DEXAMETHASONE [Concomitant]
     Indication: CHEMOTHERAPY
     Route: 042
     Dates: start: 20100304, end: 20100304
  5. DEXAMETHASONE [Concomitant]
     Route: 042
     Dates: start: 20100311, end: 20100311
  6. DEXAMETHASONE [Concomitant]
     Route: 042
     Dates: start: 20100226, end: 20100226
  7. DOCUSATE SODIUM [Concomitant]
     Indication: CONSTIPATION
     Route: 048
     Dates: start: 20100226
  8. PREMARIN [Concomitant]
     Indication: HORMONE REPLACEMENT THERAPY
     Route: 065
     Dates: start: 20100311, end: 20100314
  9. PREMARIN [Concomitant]
     Route: 048
     Dates: start: 20100329, end: 20100401
  10. LANSOPRAZOLE [Concomitant]
     Indication: GASTROOESOPHAGEAL REFLUX DISEASE
     Route: 048
     Dates: start: 20100226, end: 20100314
  11. LANSOPRAZOLE [Concomitant]
     Route: 048
     Dates: start: 20100329, end: 20100402
  12. LANSOPRAZOLE [Concomitant]
     Indication: DYSPEPSIA
     Route: 048
     Dates: start: 20100226, end: 20100314
  13. LANSOPRAZOLE [Concomitant]
     Route: 048
     Dates: start: 20100329, end: 20100402
  14. LEVOMEPROMAZINE [Concomitant]
     Indication: NAUSEA
     Route: 048
     Dates: start: 20100311, end: 20100311
  15. LEVOMEPROMAZINE [Concomitant]
     Route: 048
     Dates: start: 20100402, end: 20100402
  16. LIDOCAINE [Concomitant]
     Route: 058
     Dates: start: 20100331, end: 20100331
  17. MAGNESIUM SULFATE [Concomitant]
     Route: 042
     Dates: start: 20100226, end: 20100226
  18. MAGNESIUM SULFATE [Concomitant]
     Route: 042
     Dates: start: 20100304, end: 20100304
  19. METOCLOPRAMIDE [Concomitant]
     Indication: NAUSEA
     Route: 048
     Dates: start: 20100304, end: 20100419
  20. ORAMORPH SR [Concomitant]
     Indication: PAIN
     Route: 048
     Dates: start: 20100311, end: 20100312
  21. ONDANSETRON [Concomitant]
     Indication: NAUSEA
     Route: 042
     Dates: start: 20100226
  22. ONDANSETRON [Concomitant]
     Route: 042
     Dates: start: 20100304
  23. ONDANSETRON [Concomitant]
     Route: 042
     Dates: start: 20100311
  24. NULYTELY [Concomitant]
     Indication: CONSTIPATION
     Route: 048
     Dates: start: 20100226
  25. GAVISCON [Concomitant]
     Indication: GASTROOESOPHAGEAL REFLUX DISEASE
     Route: 048
     Dates: start: 20100401, end: 20100402

REACTIONS (3)
  - ERYTHEMA MULTIFORME [None]
  - GENERALISED ERYTHEMA [None]
  - TOXIC EPIDERMAL NECROLYSIS [None]
